FAERS Safety Report 6634522-X (Version None)
Quarter: 2010Q1

REPORT INFORMATION
  Report Type: 
  Country: None (occurrence: None)
  Receive Date: 20100311
  Receipt Date: 20100311
  Transmission Date: 20100710
  Serious: Yes (Hospitalization)
  Sender: FDA-Public Use
  Company Number: None

PATIENT
  Age: 76 Year
  Sex: Male
  Weight: 53.978 kg

DRUGS (1)
  1. STALEVO 125 [Suspect]
     Indication: PARKINSON'S DISEASE
     Dosage: 125MG QID PO
     Route: 048
     Dates: start: 20100207, end: 20100302

REACTIONS (7)
  - ABDOMINAL PAIN [None]
  - CONFUSIONAL STATE [None]
  - DRUG DISPENSING ERROR [None]
  - HALLUCINATION [None]
  - INCORRECT DOSE ADMINISTERED [None]
  - MEDICATION ERROR [None]
  - PRODUCT PACKAGING ISSUE [None]
